FAERS Safety Report 9507831 (Version 1)
Quarter: 2013Q3

REPORT INFORMATION
  Report Type: Spontaneous
  Country: FR (occurrence: FR)
  Receive Date: 20130909
  Receipt Date: 20130909
  Transmission Date: 20140515
  Serious: Yes (Life-Threatening, Hospitalization)
  Sender: FDA-Public Use
  Company Number: FR-PFIZER INC-2013253930

PATIENT
  Age: 71 Year
  Sex: Female

DRUGS (6)
  1. TYGACIL [Suspect]
     Dosage: UNK
     Route: 042
     Dates: start: 20070617, end: 20070617
  2. FLAGYL ^AVENTIS^ [Suspect]
     Dosage: UNK
     Route: 042
     Dates: start: 20070617, end: 20070617
  3. SPASFON [Suspect]
     Dosage: UNK
     Route: 042
     Dates: start: 20070617, end: 20070617
  4. PLAVIX [Concomitant]
     Dosage: 1 DF, DAILY
  5. XALATAN [Concomitant]
     Dosage: 1 GTT, IN BOTH EYES
     Route: 047
  6. ZOLTUM [Concomitant]

REACTIONS (3)
  - Rash [Recovered/Resolved]
  - Angioedema [Unknown]
  - Hypotension [Recovered/Resolved]
